FAERS Safety Report 20601739 (Version 3)
Quarter: 2022Q3

REPORT INFORMATION
  Report Type: Spontaneous
  Country: JP (occurrence: JP)
  Receive Date: 20220316
  Receipt Date: 20220715
  Transmission Date: 20221027
  Serious: No
  Sender: FDA-Public Use
  Company Number: JP-GLAXOSMITHKLINE-JP2022JPN044449

PATIENT

DRUGS (15)
  1. SOTROVIMAB [Suspect]
     Active Substance: SOTROVIMAB
     Indication: COVID-19
     Dosage: 500 MG, SINGLE
     Dates: start: 20220207
  2. VEKLURY [Concomitant]
     Active Substance: REMDESIVIR
     Indication: COVID-19
     Dosage: 200 MG FOR THE FIRST DAY, 100 MG FOR THE SECOND AND THIRD DAY, DOSING NUMBER: 3
     Dates: start: 20220204, end: 20220206
  3. RACOL-NF [Concomitant]
     Dosage: 300 G, TID, AFTER BREAKFAST, LUNCH, AND DINNER, TOGETHER WITH 150 ML OF HOT WATER X 3 TIMES A DAY
  4. LANSOPRAZOLE-OD TABLETS [Concomitant]
     Indication: Prophylaxis
     Dosage: 15 MG, QD, AFTER BREAKFAST
  5. BISOPROLOL FUMARATE TABLET [Concomitant]
     Indication: Cardiac failure congestive
     Dosage: 5 MG, QD, AFTER BREAKFAST
  6. EBRANTIL CAPSULES [Concomitant]
     Indication: Neurogenic bladder
     Dosage: 1 DF, QD, AFTER BREAKFAST
  7. DISTIGMINE BROMIDE [Concomitant]
     Active Substance: DISTIGMINE BROMIDE
     Indication: Neurogenic bladder
     Dosage: 1 DF, QD, AFTER BREAKFAST
  8. SPIRONOLACTONE [Concomitant]
     Active Substance: SPIRONOLACTONE
     Indication: Cardiac failure congestive
     Dosage: 25 MG, QD, AFTER BREAKFAST
  9. LASIX [Concomitant]
     Active Substance: FUROSEMIDE
     Indication: Cardiac failure congestive
     Dosage: 40 MG, QD, AFTER BREAKFAST
  10. SAMSCA [Concomitant]
     Active Substance: TOLVAPTAN
     Indication: Cardiac failure congestive
     Dosage: 7.5 MG, QD, AFTER BREAKFAST
  11. LEVETIRACETAM [Concomitant]
     Active Substance: LEVETIRACETAM
     Indication: Epilepsy
     Dosage: 500 MG, BID, AFTER BREAKFAST AND DINNER
  12. MAGNESIUM OXIDE [Concomitant]
     Active Substance: MAGNESIUM OXIDE
     Indication: Constipation
     Dosage: 330 MG, BID, AFTER BREAKFAST AND DINNER
  13. XARELTO OD [Concomitant]
     Indication: Atrial fibrillation
     Dosage: 10 MG, QD, AFTER BREAKFAST
  14. SODIUM PICOSULFATE ORAL SOLUTION [Concomitant]
     Dosage: QD, 10 DROPS PER DOSE, AT THE TIME OF  CONSTIPATION (FULL DOSE PRESCRIPTION)
  15. PETROLATUM [Concomitant]
     Active Substance: PETROLATUM
     Dosage: ONCE OR SEVERAL TIMES A DAY, ON DESICCATED AREAS

REACTIONS (2)
  - Blood urea increased [Recovering/Resolving]
  - Blood potassium increased [Recovered/Resolved]

NARRATIVE: CASE EVENT DATE: 20220215
